FAERS Safety Report 8272655-5 (Version None)
Quarter: 2012Q2

REPORT INFORMATION
  Report Type: 
  Country: None (occurrence: None)
  Receive Date: 20120410
  Receipt Date: 20120403
  Transmission Date: 20120825
  Serious: Yes (Hospitalization)
  Sender: FDA-Public Use
  Company Number: US-AMGEN-USASP2012021250

PATIENT
  Age: 55 Year
  Sex: Female

DRUGS (2)
  1. REMICADE [Concomitant]
     Dosage: UNK
  2. ENBREL [Suspect]
     Indication: RHEUMATOID ARTHRITIS
     Dosage: 50 MG, QWK
     Dates: start: 20000223

REACTIONS (5)
  - PSORIATIC ARTHROPATHY [None]
  - UPPER RESPIRATORY TRACT INFECTION [None]
  - PITUITARY TUMOUR BENIGN [None]
  - PNEUMONIA BACTERIAL [None]
  - PNEUMONIA FUNGAL [None]
